FAERS Safety Report 26122309 (Version 2)
Quarter: 2025Q4

REPORT INFORMATION
  Report Type: Spontaneous
  Country: CN (occurrence: CN)
  Receive Date: 20251204
  Receipt Date: 20251223
  Transmission Date: 20260118
  Serious: Yes (Death, Life-Threatening, Other)
  Sender: BRISTOL-MYERS SQUIBB COMPANY
  Company Number: CN-BRISTOL-MYERS SQUIBB COMPANY-2025-162622

PATIENT
  Age: 54 Year
  Sex: Male

DRUGS (2)
  1. OPDIVO [Suspect]
     Active Substance: NIVOLUMAB
     Indication: Skin cancer
     Dosage: DRUG USE-TIMES: 1 AND DRUG USE-DAYS: 1
     Route: 041
     Dates: start: 20250618, end: 20250618
  2. ELOXATIN [Suspect]
     Active Substance: OXALIPLATIN
     Indication: Skin cancer
     Dosage: DRUG USE-TIMES: 1 AND DRUG USE-DAYS: 1
     Route: 041
     Dates: start: 20250621, end: 20250621

REACTIONS (3)
  - Thrombocytopenia [Fatal]
  - Pulmonary arterial hypertension [Fatal]
  - Off label use [Unknown]

NARRATIVE: CASE EVENT DATE: 20250710
